FAERS Safety Report 7771234-3 (Version None)
Quarter: 2011Q3

REPORT INFORMATION
  Report Type: 
  Country: None (occurrence: None)
  Receive Date: 20110922
  Receipt Date: 20100826
  Transmission Date: 20111222
  Serious: No
  Sender: FDA-Public Use
  Company Number: US-ASTRAZENECA-2010SE40305

PATIENT

DRUGS (4)
  1. CELEXA [Concomitant]
  2. SEROQUEL [Suspect]
     Route: 064
     Dates: start: 20020101, end: 20080101
  3. XAXEX [Concomitant]
  4. LITHIUM CARBONATE [Concomitant]

REACTIONS (1)
  - CARDIAC MURMUR [None]
